FAERS Safety Report 18116239 (Version 3)
Quarter: 2020Q3

REPORT INFORMATION
  Report Type: Report from Study
  Country: IE (occurrence: IE)
  Receive Date: 20200805
  Receipt Date: 20200908
  Transmission Date: 20201103
  Serious: Yes (Hospitalization)
  Sender: FDA-Public Use
  Company Number: IE-TAKEDA-2020TUS026197

PATIENT
  Age: 71 Year
  Sex: Male

DRUGS (23)
  1. BORTEZOMIB. [Suspect]
     Active Substance: BORTEZOMIB
     Dosage: 0.8 MILLIGRAM/SQ. METER
     Route: 058
     Dates: start: 20200409
  2. BORTEZOMIB. [Suspect]
     Active Substance: BORTEZOMIB
     Dosage: 0.8 MILLIGRAM/SQ. METER
     Route: 058
     Dates: start: 20200528
  3. VALACICLOVIR [Concomitant]
     Active Substance: VALACYCLOVIR HYDROCHLORIDE
     Dosage: 500 MILLIGRAM, BID
     Route: 050
  4. LANSOPRAZOLE. [Concomitant]
     Active Substance: LANSOPRAZOLE
     Dosage: 30 MILLIGRAM, TID
     Route: 050
  5. BORTEZOMIB. [Suspect]
     Active Substance: BORTEZOMIB
     Dosage: 0.8 MILLIGRAM/SQ. METER
     Route: 058
     Dates: start: 20200416
  6. IMODIUM [Concomitant]
     Active Substance: LOPERAMIDE HYDROCHLORIDE
     Indication: PRODUCT USED FOR UNKNOWN INDICATION
     Dosage: UNK
     Route: 065
  7. BORTEZOMIB. [Suspect]
     Active Substance: BORTEZOMIB
     Dosage: 0.8 MILLIGRAM/SQ. METER
     Route: 058
     Dates: start: 20200507
  8. BORTEZOMIB. [Suspect]
     Active Substance: BORTEZOMIB
     Dosage: UNK
     Route: 058
     Dates: start: 20200511
  9. BORTEZOMIB. [Suspect]
     Active Substance: BORTEZOMIB
     Dosage: 0.8 MILLIGRAM/SQ. METER
     Route: 058
     Dates: start: 20200611
  10. BORTEZOMIB. [Suspect]
     Active Substance: BORTEZOMIB
     Dosage: 1.3 MILLIGRAM/SQ. METER
     Route: 058
  11. BORTEZOMIB. [Suspect]
     Active Substance: BORTEZOMIB
     Indication: PLASMA CELL MYELOMA
     Dosage: 1.3 MILLIGRAM/SQ. METER
     Route: 058
     Dates: start: 20180427
  12. BORTEZOMIB. [Suspect]
     Active Substance: BORTEZOMIB
     Dosage: 0.8 MILLIGRAM/SQ. METER
     Route: 058
     Dates: start: 20200402
  13. BORTEZOMIB. [Suspect]
     Active Substance: BORTEZOMIB
     Dosage: 0.8 MILLIGRAM/SQ. METER
     Route: 058
     Dates: start: 20200521
  14. ASPIRIN                            /00002701/ [Concomitant]
     Active Substance: ASPIRIN
     Dosage: 75 MILLIGRAM, QD
     Route: 050
  15. CALCICHEW D3 [Concomitant]
     Active Substance: CALCIUM\CHOLECALCIFEROL
     Dosage: 100 MILLIGRAM, QD
     Route: 050
  16. BORTEZOMIB. [Suspect]
     Active Substance: BORTEZOMIB
     Dosage: 0.8 MILLIGRAM/SQ. METER
     Route: 058
     Dates: start: 20200514
  17. DEXAMETHASONE. [Concomitant]
     Active Substance: DEXAMETHASONE
     Dosage: 20 MILLIGRAM
     Route: 050
  18. BORTEZOMIB. [Suspect]
     Active Substance: BORTEZOMIB
     Dosage: 0.8 MILLIGRAM/SQ. METER
     Route: 058
     Dates: start: 20200430
  19. BORTEZOMIB. [Suspect]
     Active Substance: BORTEZOMIB
     Dosage: 0.8 MILLIGRAM/SQ. METER
     Route: 058
     Dates: start: 20200618
  20. BORTEZOMIB. [Suspect]
     Active Substance: BORTEZOMIB
     Dosage: 0.8 MILLIGRAM/SQ. METER
     Route: 058
     Dates: start: 20200312
  21. BORTEZOMIB. [Suspect]
     Active Substance: BORTEZOMIB
     Dosage: 0.8 MILLIGRAM/SQ. METER
     Route: 058
     Dates: start: 20200326
  22. BORTEZOMIB. [Suspect]
     Active Substance: BORTEZOMIB
     Dosage: 0.8 MILLIGRAM/SQ. METER
     Route: 058
     Dates: start: 20200423
  23. CYCLOPHOSPHAMIDE. [Concomitant]
     Active Substance: CYCLOPHOSPHAMIDE
     Dosage: 50 MILLIGRAM, QD
     Route: 050

REACTIONS (9)
  - Fall [Recovered/Resolved]
  - Feeling abnormal [Recovered/Resolved]
  - Asthenia [Recovered/Resolved]
  - Hypotension [Not Recovered/Not Resolved]
  - Diarrhoea [Recovered/Resolved]
  - Hospitalisation [Unknown]
  - Nausea [Recovered/Resolved]
  - Epistaxis [Unknown]
  - Poor venous access [Not Recovered/Not Resolved]

NARRATIVE: CASE EVENT DATE: 20200326
